FAERS Safety Report 6973866-9 (Version None)
Quarter: 2010Q3

REPORT INFORMATION
  Report Type: 
  Country: None (occurrence: None)
  Receive Date: 20100909
  Receipt Date: 20100831
  Transmission Date: 20110219
  Serious: Yes (Hospitalization)
  Sender: FDA-Public Use
  Company Number: B0672873A

PATIENT
  Age: 70 Year
  Sex: Male

DRUGS (6)
  1. SERETIDE [Suspect]
     Indication: CHRONIC OBSTRUCTIVE PULMONARY DISEASE
     Dosage: 500MCG PER DAY
     Route: 055
  2. BLINDED STUDY MEDICATION [Suspect]
     Indication: PRODUCT USED FOR UNKNOWN INDICATION
     Dosage: 2IUAX PER DAY
     Route: 048
  3. SPIRIVA [Concomitant]
     Route: 055
  4. ACINON [Concomitant]
     Route: 048
  5. MUCOSOLVAN [Concomitant]
     Route: 048
  6. UNKNOWN DRUG [Concomitant]
     Route: 065

REACTIONS (4)
  - C-REACTIVE PROTEIN INCREASED [None]
  - COUGH [None]
  - LOBAR PNEUMONIA [None]
  - PRODUCTIVE COUGH [None]
